FAERS Safety Report 4939211-5 (Version None)
Quarter: 2006Q1

REPORT INFORMATION
  Report Type: 
  Country: None (occurrence: None)
  Receive Date: 20060306
  Receipt Date: 20060221
  Transmission Date: 20060701
  Serious: Yes (Death)
  Sender: FDA-Public Use
  Company Number: 13553

PATIENT
  Age: 46 Year
  Sex: Female

DRUGS (5)
  1. METHOTREXATE [Suspect]
     Indication: RHEUMATOID ARTHRITIS
     Dosage: 15 MG WEEKLY IM
     Route: 030
  2. SULFASALAZINE [Concomitant]
  3. INDOMETHACIN [Concomitant]
  4. FOLIC ACID [Concomitant]
  5. PREDNISOLONE [Concomitant]

REACTIONS (12)
  - BLOOD GLUCOSE DECREASED [None]
  - BLOOD PRESSURE INCREASED [None]
  - CARDIAC FAILURE [None]
  - CARDIAC TAMPONADE [None]
  - HAEMOGLOBIN DECREASED [None]
  - HEART RATE INCREASED [None]
  - HYPOTENSION [None]
  - INFLAMMATION [None]
  - PALPITATIONS [None]
  - PERICARDIAL EFFUSION [None]
  - RESPIRATORY DISTRESS [None]
  - RESPIRATORY FAILURE [None]
